FAERS Safety Report 17004088 (Version 3)
Quarter: 2019Q4

REPORT INFORMATION
  Report Type: Spontaneous
  Country: US (occurrence: US)
  Receive Date: 20191107
  Receipt Date: 20191213
  Transmission Date: 20200122
  Serious: Yes (Hospitalization, Other)
  Sender: FDA-Public Use
  Company Number: US-CATALYST PHARMACEUTICALS, INC-2019CAT00552

PATIENT
  Age: 66 Year
  Sex: Female

DRUGS (2)
  1. FIRDAPSE [Suspect]
     Active Substance: AMIFAMPRIDINE
     Dosage: 1 TABLETS, AS NEEDED
     Route: 048
     Dates: start: 2019
  2. FIRDAPSE [Suspect]
     Active Substance: AMIFAMPRIDINE
     Indication: MYASTHENIC SYNDROME
     Dosage: 20 MG, 2X/DAY
     Route: 048
     Dates: start: 2019

REACTIONS (8)
  - Abdominal adhesions [Unknown]
  - Abscess [Not Recovered/Not Resolved]
  - Procedural nausea [Unknown]
  - Procedural vomiting [Unknown]
  - Abdominal infection [Unknown]
  - Abdominal operation [Unknown]
  - Post procedural complication [Unknown]
  - Pleural effusion [Unknown]

NARRATIVE: CASE EVENT DATE: 20191015
